FAERS Safety Report 8162276-7 (Version None)
Quarter: 2012Q1

REPORT INFORMATION
  Report Type: 
  Country: None (occurrence: None)
  Receive Date: 20120224
  Receipt Date: 20120214
  Transmission Date: 20120608
  Serious: No
  Sender: FDA-Public Use
  Company Number: US-B.I. PHARMACEUTICALS,INC./RIDGEFIELD-2012-BP-02844BP

PATIENT
  Sex: Female

DRUGS (5)
  1. PAXIL [Concomitant]
     Dosage: 20 MG
     Route: 048
  2. ADVAIR DISKUS 100/50 [Concomitant]
     Indication: CHRONIC OBSTRUCTIVE PULMONARY DISEASE
     Route: 055
  3. SPIRIVA [Suspect]
     Indication: CHRONIC OBSTRUCTIVE PULMONARY DISEASE
     Dosage: 18 MCG
     Route: 055
     Dates: start: 20080101
  4. MULTI-VITAMIN [Concomitant]
     Indication: SUPPLEMENTATION THERAPY
     Route: 048
  5. PAXIL [Concomitant]
     Indication: ANXIETY
     Dosage: 40 MG
     Route: 048

REACTIONS (1)
  - OEDEMA PERIPHERAL [None]
